FAERS Safety Report 4945413-4 (Version None)
Quarter: 2006Q1

REPORT INFORMATION
  Report Type: 
  Country: None (occurrence: None)
  Receive Date: 20060315
  Receipt Date: 20060315
  Transmission Date: 20060701
  Serious: No
  Sender: FDA-Public Use
  Company Number: None

PATIENT
  Sex: Male
  Weight: 77.1115 kg

DRUGS (1)
  1. HYDROMORPHONE 2 MG (LANNETT) [Suspect]
     Indication: ORAL PAIN
     Dosage: 2 MG-8 MG Q 3 H PO
     Route: 048
     Dates: start: 20060212, end: 20060222

REACTIONS (2)
  - DRUG INEFFECTIVE [None]
  - PHARMACEUTICAL PRODUCT COMPLAINT [None]
